FAERS Safety Report 9202209 (Version 3)
Quarter: 2013Q2

REPORT INFORMATION
  Report Type: Spontaneous
  Country: US (occurrence: US)
  Receive Date: 20130401
  Receipt Date: 20130529
  Transmission Date: 20140414
  Serious: No
  Sender: FDA-Public Use
  Company Number: US-009507513-1303USA009949

PATIENT
  Age: 26 Year
  Sex: Female
  Weight: 89.34 kg

DRUGS (3)
  1. NEXPLANON [Suspect]
     Indication: CONTRACEPTION
     Dosage: 1 ROD, UNK
     Route: 059
     Dates: start: 20130129, end: 20130307
  2. NEXPLANON [Suspect]
     Dosage: UNK
     Dates: start: 20130522
  3. BACTRIM [Concomitant]

REACTIONS (3)
  - Implant site infection [Recovered/Resolved]
  - Device expulsion [Recovered/Resolved]
  - Device difficult to use [Unknown]
